FAERS Safety Report 22119894 (Version 2)
Quarter: 2023Q2

REPORT INFORMATION
  Report Type: Report from Study
  Country: US (occurrence: US)
  Receive Date: 20230321
  Receipt Date: 20230607
  Transmission Date: 20230721
  Serious: Yes (Death)
  Sender: FDA-Public Use
  Company Number: US-002147023-NVSC2023US064900

PATIENT
  Sex: Male

DRUGS (2)
  1. NEORAL [Suspect]
     Active Substance: CYCLOSPORINE
     Indication: Product used for unknown indication
     Dosage: UNK
     Route: 065
  2. MYFORTIC [Suspect]
     Active Substance: MYCOPHENOLATE SODIUM
     Indication: Product used for unknown indication
     Dosage: UNK
     Route: 065

REACTIONS (4)
  - Chronic obstructive pulmonary disease [Fatal]
  - Metastatic neoplasm [Fatal]
  - Dyspnoea [Fatal]
  - Respiratory failure [Fatal]
